FAERS Safety Report 12704760 (Version 2)
Quarter: 2016Q3

REPORT INFORMATION
  Report Type: Report from Study
  Country: US (occurrence: US)
  Receive Date: 20160831
  Receipt Date: 20160906
  Transmission Date: 20161109
  Serious: Yes (Death)
  Sender: FDA-Public Use
  Company Number: US-ACTELION-A-NJ2016-141336

PATIENT
  Age: 68 Year
  Sex: Female

DRUGS (12)
  1. ADCIRCA [Concomitant]
     Active Substance: TADALAFIL
     Dosage: 40 UNK, QD
  2. PRILOSEC [Concomitant]
     Active Substance: OMEPRAZOLE MAGNESIUM
     Dosage: 20 UNK, BID
  3. OPSUMIT [Suspect]
     Active Substance: MACITENTAN
     Indication: PULMONARY HYPERTENSION
     Dosage: 10 MG, QD
     Route: 048
     Dates: start: 201411, end: 20160814
  4. LANOXIN [Concomitant]
     Active Substance: DIGOXIN
     Dosage: 125 MCG, QD
  5. FOSAMAX [Concomitant]
     Active Substance: ALENDRONATE SODIUM
     Dosage: 70 MG, Q1WEEK
  6. SPIRONOLACTONE. [Concomitant]
     Active Substance: SPIRONOLACTONE
  7. CELLCEPT [Concomitant]
     Active Substance: MYCOPHENOLATE MOFETIL\MYCOPHENOLATE MOFETIL HYDROCHLORIDE
     Dosage: 1000 UNK, BID
  8. POTASSIUM [Concomitant]
     Active Substance: POTASSIUM
  9. VENTAVIS [Suspect]
     Active Substance: ILOPROST
     Indication: PULMONARY HYPERTENSION
     Dosage: 5 MCG, 6XDAY
     Route: 055
     Dates: start: 20150303, end: 20160814
  10. LASIX [Concomitant]
     Active Substance: FUROSEMIDE
     Dosage: 80 UNK, BID
  11. IRON [Concomitant]
     Active Substance: IRON
     Dosage: 325 MG, QD
  12. CALCITRATE [Concomitant]
     Active Substance: CALCIUM CITRATE

REACTIONS (2)
  - Septic shock [Fatal]
  - Localised infection [Fatal]
